FAERS Safety Report 15094854 (Version 2)
Quarter: 2018Q3

REPORT INFORMATION
  Report Type: Report from Study
  Country: None (occurrence: US)
  Receive Date: 20180701
  Receipt Date: 20180906
  Transmission Date: 20181010
  Serious: Yes (Hospitalization, Other)
  Sender: FDA-Public Use
  Company Number: US-ABBVIE-18K-163-2406084-00

PATIENT
  Sex: Female

DRUGS (1)
  1. HUMIRA [Suspect]
     Active Substance: ADALIMUMAB
     Indication: CROHN^S DISEASE
     Route: 058

REACTIONS (6)
  - Anal incontinence [Unknown]
  - Intestinal obstruction [Recovered/Resolved]
  - Rash [Not Recovered/Not Resolved]
  - Cataract [Unknown]
  - Feeling hot [Unknown]
  - Cellulitis [Recovered/Resolved]
